FAERS Safety Report 9576400 (Version 2)
Quarter: 2013Q4

REPORT INFORMATION
  Report Type: Spontaneous
  Country: US (occurrence: US)
  Receive Date: 20131001
  Receipt Date: 20131001
  Transmission Date: 20140711
  Serious: No
  Sender: FDA-Public Use
  Company Number: US-AMGEN-USASP2013000441

PATIENT
  Age: 62 Year
  Sex: Female
  Weight: 102.4 kg

DRUGS (10)
  1. ENBREL [Suspect]
     Indication: RHEUMATOID ARTHRITIS
     Dosage: 50 MG, Q2WK
     Route: 058
     Dates: start: 20120517, end: 20120805
  2. METHOTREXATE [Concomitant]
     Indication: RHEUMATOID ARTHRITIS
     Dosage: 25 UNK, QWK
     Route: 048
     Dates: start: 2006
  3. FOLIC ACID [Concomitant]
     Indication: RHEUMATOID ARTHRITIS
     Dosage: 5 UNK, QD
     Route: 048
  4. NAPROSYNE [Concomitant]
     Indication: RHEUMATOID ARTHRITIS
     Dosage: 500 UNK, TID
     Route: 048
  5. PLAQUENIL                          /00072602/ [Concomitant]
     Indication: RHEUMATOID ARTHRITIS
     Dosage: 200 UNK, UNK
     Route: 048
  6. PREDNISONE [Concomitant]
     Indication: RHEUMATOID ARTHRITIS
     Dosage: 5 UNK, QD
     Route: 048
     Dates: start: 2006
  7. ENALAPRIL [Concomitant]
     Dosage: UNK
  8. RANITIDINE [Concomitant]
     Dosage: 150 UNK, QD
  9. TRAMADOL [Concomitant]
     Dosage: 50 UNK, BID
  10. FLEXERIL                           /00428402/ [Concomitant]
     Dosage: 5 MG, QHS

REACTIONS (5)
  - Gastric disorder [Recovered/Resolved]
  - Local swelling [Recovered/Resolved]
  - Pain in extremity [Recovered/Resolved]
  - Arthralgia [Recovered/Resolved]
  - Joint swelling [Recovered/Resolved]
